FAERS Safety Report 4384706-9 (Version None)
Quarter: 2004Q2

REPORT INFORMATION
  Report Type: 
  Country: None (occurrence: None)
  Receive Date: 20040621
  Receipt Date: 20040609
  Transmission Date: 20050107
  Serious: Yes (Hospitalization)
  Sender: FDA-Public Use
  Company Number: 2004IC000168

PATIENT
  Age: 61 Year
  Sex: Male

DRUGS (2)
  1. 5-FLUROURACIL (FLUOROURACIL) [Suspect]
     Indication: LARYNGEAL CANCER
     Dosage: 150 MG; TWICE A DAY; INTRAVENOUS
     Route: 042
  2. CISPLATINUM (GENERIC UNKNOWN) [Suspect]
     Indication: LARYNGEAL CANCER
     Dosage: 30 MG; TWICE A DAY

REACTIONS (9)
  - ATRIAL FIBRILLATION [None]
  - BLOOD PRESSURE SYSTOLIC DECREASED [None]
  - CENTRAL VENOUS PRESSURE INCREASED [None]
  - DRUG INEFFECTIVE [None]
  - ECHOCARDIOGRAM ABNORMAL [None]
  - GASTROINTESTINAL HAEMORRHAGE [None]
  - MYOCARDIAL INFARCTION [None]
  - PALLOR [None]
  - VASOCONSTRICTION [None]
